FAERS Safety Report 18359827 (Version 2)
Quarter: 2021Q3

REPORT INFORMATION
  Report Type: Spontaneous
  Country: US (occurrence: US)
  Receive Date: 20201008
  Receipt Date: 20210913
  Transmission Date: 20211014
  Serious: No
  Sender: FDA-Public Use
  Company Number: US-MYLANLABS-2020M1081058

PATIENT
  Sex: Female

DRUGS (1)
  1. PROCTOFOAM HC [Suspect]
     Active Substance: HYDROCORTISONE ACETATE\PRAMOXINE HYDROCHLORIDE
     Indication: HAEMORRHOIDS
     Dosage: UNK UNK, TID (3 TIMES A DAY)
     Route: 054

REACTIONS (2)
  - Off label use [Not Recovered/Not Resolved]
  - Product quality issue [Unknown]
